FAERS Safety Report 8418717-0 (Version None)
Quarter: 2012Q2

REPORT INFORMATION
  Report Type: 
  Country: None (occurrence: None)
  Receive Date: 20120531
  Receipt Date: 20120515
  Transmission Date: 20120825
  Serious: Yes (Other)
  Sender: FDA-Public Use
  Company Number: DKLU1081338

PATIENT

DRUGS (2)
  1. GLUCOCORTICOID (GLUCOCORTICOIDS) [Concomitant]
  2. ELSPAR [Suspect]
     Indication: NEOPLASM MALIGNANT

REACTIONS (1)
  - ISCHAEMIC CEREBRAL INFARCTION [None]
